FAERS Safety Report 8949727 (Version 1)
Quarter: 2012Q4

REPORT INFORMATION
  Report Type: 
  Country: US (occurrence: US)
  Receive Date: 20121206
  Receipt Date: 20121206
  Transmission Date: 20130627
  Serious: No
  Sender: FDA-Public Use
  Company Number: US-009507513-1212USA002252

PATIENT
  Age: 6 Year
  Sex: Male
  Weight: 23.58 kg

DRUGS (1)
  1. CLARITIN [Suspect]
     Indication: HYPERSENSITIVITY
     Dosage: 10 mg, bid
     Route: 048
     Dates: start: 20121120

REACTIONS (1)
  - Overdose [Not Recovered/Not Resolved]
